FAERS Safety Report 17675123 (Version 1)
Quarter: 2020Q2

REPORT INFORMATION
  Report Type: Spontaneous
  Country: US (occurrence: US)
  Receive Date: 20200415
  Receipt Date: 20200415
  Transmission Date: 20200714
  Serious: No
  Sender: FDA-Public Use
  Company Number: None

PATIENT
  Age: 81 Year
  Sex: Female
  Weight: 56.25 kg

DRUGS (16)
  1. VITAMIN D [Concomitant]
     Active Substance: VITAMIN D NOS
  2. ANASTROZOLE. [Concomitant]
     Active Substance: ANASTROZOLE
  3. IRBESARTAN. [Concomitant]
     Active Substance: IRBESARTAN
  4. CLOESTIN [Concomitant]
  5. TRAMADOL. [Concomitant]
     Active Substance: TRAMADOL
  6. LANTUS [Concomitant]
     Active Substance: INSULIN GLARGINE
  7. CARVEDILOL. [Concomitant]
     Active Substance: CARVEDILOL
  8. LEVOTHYROXINE. [Concomitant]
     Active Substance: LEVOTHYROXINE
  9. PROCHLORPERAZINE. [Concomitant]
     Active Substance: PROCHLORPERAZINE
  10. ZOFRAN [Concomitant]
     Active Substance: ONDANSETRON HYDROCHLORIDE
  11. PIQRAY [Concomitant]
     Active Substance: ALPELISIB
     Dates: start: 20200118, end: 20200219
  12. AFINITOR [Suspect]
     Active Substance: EVEROLIMUS
     Indication: BREAST CANCER
     Route: 048
     Dates: start: 20200330, end: 20200415
  13. AMLODIPINE [Concomitant]
     Active Substance: AMLODIPINE BESYLATE
  14. COLESTIPOL [Concomitant]
     Active Substance: COLESTIPOL
  15. EXEMENSTANE [Concomitant]
  16. IBRANCE [Concomitant]
     Active Substance: PALBOCICLIB
     Dates: start: 20180221, end: 20200120

REACTIONS (2)
  - Blood glucose increased [None]
  - Therapy interrupted [None]

NARRATIVE: CASE EVENT DATE: 20200415
